FAERS Safety Report 24689680 (Version 1)
Quarter: 2024Q4

REPORT INFORMATION
  Report Type: Spontaneous
  Country: KR (occurrence: KR)
  Receive Date: 20241203
  Receipt Date: 20241203
  Transmission Date: 20250114
  Serious: Yes (Death, Other)
  Sender: ALEXION PHARMACEUTICALS
  Company Number: KR-AstraZeneca-CH-00758139A

PATIENT

DRUGS (4)
  1. IMFINZI [Suspect]
     Active Substance: DURVALUMAB
     Route: 065
  2. IMFINZI [Suspect]
     Active Substance: DURVALUMAB
  3. IMFINZI [Suspect]
     Active Substance: DURVALUMAB
     Route: 065
  4. IMFINZI [Suspect]
     Active Substance: DURVALUMAB

REACTIONS (1)
  - Respiratory failure [Fatal]
